FAERS Safety Report 19471171 (Version 1)
Quarter: 2021Q2

REPORT INFORMATION
  Report Type: Spontaneous
  Country: US (occurrence: US)
  Receive Date: 20210628
  Receipt Date: 20210628
  Transmission Date: 20210717
  Serious: No
  Sender: FDA-Public Use
  Company Number: US-TEVA-2021-US-1923792

PATIENT
  Sex: Male

DRUGS (1)
  1. CLONAZEPAM TEVA [Suspect]
     Active Substance: CLONAZEPAM
     Dosage: TAKE 1?2 TABLETS BY MOUTH DAILY AS NEEDED
     Route: 048

REACTIONS (6)
  - Therapeutic product effect incomplete [Unknown]
  - Product quality issue [Unknown]
  - Product odour abnormal [Unknown]
  - Somnolence [Unknown]
  - Product taste abnormal [Unknown]
  - Vomiting [Unknown]
